FAERS Safety Report 10887398 (Version 1)
Quarter: 2015Q1

REPORT INFORMATION
  Report Type: Spontaneous
  Country: US (occurrence: US)
  Receive Date: 20150304
  Receipt Date: 20150304
  Transmission Date: 20150721
  Serious: No
  Sender: FDA-Public Use
  Company Number: US-AMGEN-USASP2014037136

PATIENT
  Age: 37 Year
  Sex: Female

DRUGS (1)
  1. ENBREL [Suspect]
     Active Substance: ETANERCEPT
     Indication: ANKYLOSING SPONDYLITIS
     Dosage: 50 MG, QWK
     Route: 065
     Dates: start: 20130401, end: 201312

REACTIONS (3)
  - Fibromyalgia [Recovered/Resolved]
  - Drug interaction [Recovered/Resolved]
  - Myofascial pain syndrome [Recovered/Resolved]

NARRATIVE: CASE EVENT DATE: 201307
